FAERS Safety Report 18019482 (Version 1)
Quarter: 2020Q3

REPORT INFORMATION
  Report Type: Spontaneous
  Country: CN (occurrence: CN)
  Receive Date: 20200714
  Receipt Date: 20200714
  Transmission Date: 20201103
  Serious: Yes (Death)
  Sender: FDA-Public Use
  Company Number: CN-PFIZER INC-2020266045

PATIENT
  Age: 68 Year
  Sex: Male

DRUGS (17)
  1. LINEZOLID. [Suspect]
     Active Substance: LINEZOLID
     Indication: ANTIBIOTIC THERAPY
  2. HYDROCORTISONE. [Suspect]
     Active Substance: HYDROCORTISONE
     Indication: HYPOXIA
  3. MEZLOCILLIN SODIUM/SULBACTAM SODIUM [Suspect]
     Active Substance: MEZLOCILLIN SODIUM\SULBACTAM SODIUM
     Indication: HYPOXIA
  4. NORADRENALINE [NOREPINEPHRINE] [Suspect]
     Active Substance: NOREPINEPHRINE
     Indication: PNEUMONIA
     Dosage: UNK
     Route: 042
  5. LINEZOLID. [Suspect]
     Active Substance: LINEZOLID
     Indication: HYPOXIA
  6. HYDROCORTISONE. [Suspect]
     Active Substance: HYDROCORTISONE
     Indication: SEPTIC SHOCK
     Dosage: UNK
  7. MEZLOCILLIN SODIUM/SULBACTAM SODIUM [Suspect]
     Active Substance: MEZLOCILLIN SODIUM\SULBACTAM SODIUM
     Indication: ANTIBIOTIC THERAPY
     Dosage: UNK
  8. OSELTAMIVIR [Suspect]
     Active Substance: OSELTAMIVIR
     Indication: PNEUMONIA STAPHYLOCOCCAL
  9. OSELTAMIVIR [Suspect]
     Active Substance: OSELTAMIVIR
     Indication: PNEUMONIA
  10. LINEZOLID. [Suspect]
     Active Substance: LINEZOLID
     Indication: PNEUMONIA
  11. MEZLOCILLIN SODIUM/SULBACTAM SODIUM [Suspect]
     Active Substance: MEZLOCILLIN SODIUM\SULBACTAM SODIUM
     Indication: PNEUMONIA
  12. MEZLOCILLIN SODIUM/SULBACTAM SODIUM [Suspect]
     Active Substance: MEZLOCILLIN SODIUM\SULBACTAM SODIUM
     Indication: PNEUMONIA STAPHYLOCOCCAL
  13. NORADRENALINE [NOREPINEPHRINE] [Suspect]
     Active Substance: NOREPINEPHRINE
     Indication: PNEUMONIA STAPHYLOCOCCAL
  14. OSELTAMIVIR [Suspect]
     Active Substance: OSELTAMIVIR
     Indication: HYPOXIA
  15. NORADRENALINE [NOREPINEPHRINE] [Suspect]
     Active Substance: NOREPINEPHRINE
     Indication: HYPOXIA
  16. OSELTAMIVIR [Suspect]
     Active Substance: OSELTAMIVIR
     Indication: ANTIBIOTIC THERAPY
     Dosage: UNK
  17. LINEZOLID. [Suspect]
     Active Substance: LINEZOLID
     Indication: PNEUMONIA STAPHYLOCOCCAL
     Dosage: UNK

REACTIONS (1)
  - Drug ineffective [Fatal]
